FAERS Safety Report 9053830 (Version 2)
Quarter: 2013Q1

REPORT INFORMATION
  Report Type: Spontaneous
  Country: JP (occurrence: JP)
  Receive Date: 20130207
  Receipt Date: 20130213
  Transmission Date: 20140127
  Serious: Yes (Other)
  Sender: FDA-Public Use
  Company Number: JP-GLAXOSMITHKLINE-B0862469A

PATIENT
  Age: 12 None
  Sex: Male

DRUGS (3)
  1. RELENZA [Suspect]
     Indication: INFLUENZA
     Dosage: 10MG TWICE PER DAY
     Route: 055
     Dates: start: 20130118, end: 20130122
  2. COCARL [Suspect]
     Indication: PYREXIA
     Dosage: 200MG THREE TIMES PER DAY
     Route: 048
     Dates: start: 20130118, end: 20130122
  3. MEDICON [Suspect]
     Indication: COUGH
     Dosage: 15MG THREE TIMES PER DAY
     Route: 048
     Dates: start: 20130118, end: 20130122

REACTIONS (9)
  - Suicidal ideation [Recovered/Resolved]
  - Gaze palsy [Recovered/Resolved]
  - Unresponsive to stimuli [Recovered/Resolved]
  - Abnormal behaviour [Recovered/Resolved]
  - Screaming [Recovered/Resolved]
  - Dysarthria [Recovered/Resolved]
  - Tremor [Recovered/Resolved]
  - Vision blurred [Recovered/Resolved]
  - Nausea [Unknown]
